FAERS Safety Report 26061682 (Version 1)
Quarter: 2025Q4

REPORT INFORMATION
  Report Type: Spontaneous
  Country: US (occurrence: US)
  Receive Date: 20251118
  Receipt Date: 20251118
  Transmission Date: 20260118
  Serious: No
  Sender: BLUEPRINT MEDICINES
  Company Number: US-Blueprint Medicines Corporation-2025-AER-02540

PATIENT

DRUGS (1)
  1. AYVAKIT [Suspect]
     Active Substance: AVAPRITINIB
     Indication: Product used for unknown indication
     Route: 065

REACTIONS (6)
  - Fatigue [Unknown]
  - Photosensitivity reaction [Unknown]
  - Rash [Unknown]
  - Bone pain [Unknown]
  - Constipation [Unknown]
  - Insomnia [Unknown]
